FAERS Safety Report 8802956 (Version 1)
Quarter: 2012Q4

REPORT INFORMATION
  Report Type: 
  Country: US (occurrence: US)
  Receive Date: 20120924
  Receipt Date: 20120924
  Transmission Date: 20130627
  Serious: Yes (Death, Life-Threatening, Hospitalization)
  Sender: FDA-Public Use
  Company Number: US-VERTEX PHARMACEUTICAL INC.-AE-2012-007439

PATIENT

DRUGS (11)
  1. INCIVEK [Suspect]
     Indication: HEPATITIS C
     Dosage: UNK
     Route: 048
     Dates: end: 201110
  2. PEGINTERFERON [Concomitant]
     Indication: HEPATITIS C
     Dosage: UNK
  3. RIBAVIRIN [Concomitant]
     Indication: HEPATITIS C
  4. LUNESTA [Concomitant]
  5. LYRICA [Concomitant]
  6. LEXAPRO [Concomitant]
  7. AMLODIPINE [Concomitant]
  8. RIFAXIMIN [Concomitant]
  9. VITAMIN D /00107901/ [Concomitant]
  10. NADOLOL [Concomitant]
  11. VITAMIN B12                        /00056201/ [Concomitant]

REACTIONS (9)
  - Shock haemorrhagic [Fatal]
  - Intra-abdominal haemorrhage [Fatal]
  - Ventricular fibrillation [None]
  - Deep vein thrombosis [Unknown]
  - Bacteraemia [Recovered/Resolved]
  - Acute respiratory distress syndrome [Unknown]
  - Coagulopathy [Unknown]
  - Bronchopneumonia [Unknown]
  - Drug reaction with eosinophilia and systemic symptoms [Unknown]
